FAERS Safety Report 9219452 (Version 1)
Quarter: 2013Q2

REPORT INFORMATION
  Report Type: Spontaneous
  Country: US (occurrence: None)
  Receive Date: 20130405
  Receipt Date: 20130405
  Transmission Date: 20140414
  Serious: Yes (Hospitalization)
  Sender: FDA-Public Use
  Company Number: ACO_32691_2012

PATIENT
  Age: 46 Year
  Sex: Male

DRUGS (1)
  1. AMPYRA [Suspect]
     Dates: start: 2012

REACTIONS (1)
  - Multiple sclerosis relapse [None]
